FAERS Safety Report 12936357 (Version 2)
Quarter: 2017Q1

REPORT INFORMATION
  Report Type: Report from Study
  Country: US (occurrence: US)
  Receive Date: 20161114
  Receipt Date: 20170127
  Transmission Date: 20170428
  Serious: Yes (Death, Hospitalization, Other)
  Sender: FDA-Public Use
  Company Number: US-AMGEN-USASL2016158042

PATIENT
  Age: 82 Year
  Sex: Female
  Weight: 78 kg

DRUGS (1)
  1. SENSIPAR [Suspect]
     Active Substance: CINACALCET HYDROCHLORIDE
     Indication: PRODUCT USED FOR UNKNOWN INDICATION
     Dosage: 30 MG, QD
     Route: 048
     Dates: start: 201506

REACTIONS (9)
  - Status epilepticus [Unknown]
  - Pulse absent [Unknown]
  - Encephalopathy [Unknown]
  - Syncope [Unknown]
  - Blood parathyroid hormone abnormal [Unknown]
  - Death [Fatal]
  - Respiratory failure [Unknown]
  - Hypotension [Unknown]
  - Blood calcium decreased [Unknown]

NARRATIVE: CASE EVENT DATE: 201507
